FAERS Safety Report 11192469 (Version 2)
Quarter: 2016Q2

REPORT INFORMATION
  Report Type: Spontaneous
  Country: DK (occurrence: DK)
  Receive Date: 20150616
  Receipt Date: 20160621
  Transmission Date: 20160815
  Serious: Yes (Hospitalization, Other)
  Sender: FDA-Public Use
  Company Number: DK-ABBVIE-15K-044-1405612-00

PATIENT
  Age: 15 Year
  Sex: Male

DRUGS (10)
  1. BONYL [Suspect]
     Active Substance: NAPROXEN
     Indication: JUVENILE IDIOPATHIC ARTHRITIS
     Route: 048
     Dates: start: 2012, end: 20130812
  2. PREDNISOLON [Suspect]
     Active Substance: PREDNISOLONE
     Route: 065
     Dates: start: 201301
  3. METHOTREXATE (METHOTREXATE SODIUM) [Suspect]
     Active Substance: METHOTREXATE SODIUM
     Indication: JUVENILE IDIOPATHIC ARTHRITIS
     Dosage: 12,5 - 15 MG
     Route: 001
     Dates: start: 20121109, end: 20121207
  4. ENBREL [Suspect]
     Active Substance: ETANERCEPT
     Indication: JUVENILE IDIOPATHIC ARTHRITIS
     Route: 065
     Dates: start: 20121207, end: 20130212
  5. PREDNISOLON [Suspect]
     Active Substance: PREDNISOLONE
     Indication: JUVENILE IDIOPATHIC ARTHRITIS
     Dosage: DOSAGE DECREASED, 12.5 MG IN 4 DAYS, 6,25 MG IN 4 DAYS
     Route: 065
     Dates: start: 20120925, end: 20131016
  6. FOLIC ACID. [Concomitant]
     Active Substance: FOLIC ACID
     Indication: PRODUCT USED FOR UNKNOWN INDICATION
     Dates: start: 20121109, end: 20130313
  7. HUMIRA [Suspect]
     Active Substance: ADALIMUMAB
     Indication: JUVENILE IDIOPATHIC ARTHRITIS
     Route: 058
     Dates: start: 20130214, end: 20130812
  8. KENALOG [Suspect]
     Active Substance: TRIAMCINOLONE ACETONIDE
     Indication: JUVENILE IDIOPATHIC ARTHRITIS
     Route: 065
     Dates: start: 20120925
  9. GRANISETRON [Concomitant]
     Active Substance: GRANISETRON
     Indication: NAUSEA
     Dates: start: 20121109
  10. PREDNISOLON [Suspect]
     Active Substance: PREDNISOLONE
     Indication: PRODUCT USED FOR UNKNOWN INDICATION
     Route: 065

REACTIONS (12)
  - Cartilage atrophy [Not Recovered/Not Resolved]
  - Bone atrophy [Not Recovered/Not Resolved]
  - Arthritis [Recovered/Resolved]
  - Bone disorder [Not Recovered/Not Resolved]
  - Knee operation [Recovering/Resolving]
  - Gait disturbance [Recovering/Resolving]
  - Cartilage injury [Unknown]
  - Musculoskeletal discomfort [Unknown]
  - Oedema peripheral [Recovered/Resolved]
  - Chondropathy [Unknown]
  - Juvenile idiopathic arthritis [Unknown]
  - Synovitis [Recovered/Resolved]

NARRATIVE: CASE EVENT DATE: 2013
